FAERS Safety Report 19570081 (Version 1)
Quarter: 2021Q3

REPORT INFORMATION
  Report Type: Spontaneous
  Country: CN (occurrence: CN)
  Receive Date: 20210716
  Receipt Date: 20210716
  Transmission Date: 20211014
  Serious: Yes (Other)
  Sender: FDA-Public Use
  Company Number: CN-PFIZER INC-2021831823

PATIENT
  Age: 3 Year
  Sex: Male

DRUGS (2)
  1. AZITHROMYCIN ANHYDROUS. [Suspect]
     Active Substance: AZITHROMYCIN ANHYDROUS
     Indication: MYCOPLASMA INFECTION
     Dosage: 0.16 G, 1X/DAY
     Route: 041
     Dates: start: 20210701, end: 20210701
  2. GLUCOSE [Suspect]
     Active Substance: DEXTROSE
     Indication: VEHICLE SOLUTION USE
     Dosage: 150 ML, 1X/DAY
     Route: 041
     Dates: start: 20210701, end: 20210701

REACTIONS (3)
  - Rash erythematous [Recovering/Resolving]
  - Exfoliative rash [Recovering/Resolving]
  - Off label use [Unknown]

NARRATIVE: CASE EVENT DATE: 20210701
